FAERS Safety Report 9616001 (Version 1)
Quarter: 2013Q4

REPORT INFORMATION
  Report Type: Spontaneous
  Country: US (occurrence: US)
  Receive Date: 20131011
  Receipt Date: 20131011
  Transmission Date: 20140711
  Serious: Yes (Life-Threatening, Hospitalization)
  Sender: FDA-Public Use
  Company Number: US-SA-2013SA097474

PATIENT
  Age: 84 Year
  Sex: Male

DRUGS (2)
  1. BCG FOR IMMUNOTHERAPY [Suspect]
     Indication: BLADDER TRANSITIONAL CELL CARCINOMA
     Route: 043
  2. ISONIAZID [Suspect]
     Indication: BOVINE TUBERCULOSIS
     Route: 065

REACTIONS (17)
  - Bovine tuberculosis [Recovered/Resolved]
  - Asthenia [Recovered/Resolved]
  - Fatigue [Recovered/Resolved]
  - Decreased appetite [Recovered/Resolved]
  - Weight decreased [Recovered/Resolved]
  - Chills [Recovered/Resolved]
  - Pyrexia [Recovered/Resolved]
  - Dyspnoea [Recovered/Resolved]
  - Cachexia [Recovered/Resolved]
  - Muscle atrophy [Recovered/Resolved]
  - Cough [Recovered/Resolved]
  - Wheezing [Recovered/Resolved]
  - Mycobacterium tuberculosis complex test positive [Recovered/Resolved]
  - Red blood cell sedimentation rate increased [Recovered/Resolved]
  - Aortic aneurysm [Recovered/Resolved]
  - Mycotic aneurysm [Recovered/Resolved]
  - Hepatitis [Unknown]
